FAERS Safety Report 13496615 (Version 2)
Quarter: 2017Q2

REPORT INFORMATION
  Report Type: Spontaneous
  Country: US (occurrence: US)
  Receive Date: 20170428
  Receipt Date: 20170428
  Transmission Date: 20170830
  Serious: No
  Sender: FDA-Public Use
  Company Number: US-JAZZ-2017-US-003338

PATIENT
  Sex: Female

DRUGS (25)
  1. BENADRYL ALLERGY [Concomitant]
     Active Substance: DIPHENHYDRAMINE HYDROCHLORIDE
  2. LAMICTAL [Concomitant]
     Active Substance: LAMOTRIGINE
  3. TYLENOL EXTRA STRENGTH [Concomitant]
     Active Substance: ACETAMINOPHEN
  4. MAGNESIUM OXIDE. [Concomitant]
     Active Substance: MAGNESIUM OXIDE
  5. METHOTREXATE. [Concomitant]
     Active Substance: METHOTREXATE
  6. ROBAXIN [Concomitant]
     Active Substance: METHOCARBAMOL
  7. SULFASALAZINE. [Concomitant]
     Active Substance: SULFASALAZINE
  8. CRANBERRY                          /01512301/ [Concomitant]
     Active Substance: CRANBERRY
  9. NAPROSYN [Concomitant]
     Active Substance: NAPROXEN
  10. REMICADE [Concomitant]
     Active Substance: INFLIXIMAB
  11. ADDERALL [Concomitant]
     Active Substance: AMPHETAMINE ASPARTATE\AMPHETAMINE SULFATE\DEXTROAMPHETAMINE SACCHARATE\DEXTROAMPHETAMINE SULFATE
  12. ISOMETHEPTENE DICHLORAL ACETAMINE [Concomitant]
  13. SEASONIQUE [Concomitant]
     Active Substance: ETHINYL ESTRADIOL\LEVONORGESTREL
  14. ZOLOFT [Concomitant]
     Active Substance: SERTRALINE HYDROCHLORIDE
  15. ALLEGRA ALLERGY [Concomitant]
     Active Substance: FEXOFENADINE HYDROCHLORIDE
  16. PROAIR HFA [Concomitant]
     Active Substance: ALBUTEROL SULFATE
  17. XYREM [Suspect]
     Active Substance: SODIUM OXYBATE
     Indication: PRODUCT USED FOR UNKNOWN INDICATION
     Dosage: 2.25G, BID
     Route: 048
     Dates: start: 201611, end: 201611
  18. DOCUSATE SODIUM + SENNA [Concomitant]
     Active Substance: DOCUSATE SODIUM\SENNOSIDE A\SENNOSIDE B
  19. PREDNISONE. [Concomitant]
     Active Substance: PREDNISONE
  20. NORCO [Concomitant]
     Active Substance: ACETAMINOPHEN\HYDROCODONE BITARTRATE
  21. XYREM [Suspect]
     Active Substance: SODIUM OXYBATE
     Dosage: DOSE ADJUSTMENT
     Route: 048
     Dates: start: 201611, end: 201701
  22. XYREM [Suspect]
     Active Substance: SODIUM OXYBATE
     Dosage: 3.75G, BID
     Route: 048
     Dates: start: 201701
  23. FOLIC ACID. [Concomitant]
     Active Substance: FOLIC ACID
  24. SINGULAIR [Concomitant]
     Active Substance: MONTELUKAST SODIUM
  25. PRILOSEC [Concomitant]
     Active Substance: OMEPRAZOLE MAGNESIUM

REACTIONS (2)
  - Nausea [Recovering/Resolving]
  - Abdominal discomfort [Unknown]
